FAERS Safety Report 17990941 (Version 3)
Quarter: 2020Q4

REPORT INFORMATION
  Report Type: Spontaneous
  Country: US (occurrence: US)
  Receive Date: 20200707
  Receipt Date: 20201124
  Transmission Date: 20210113
  Serious: Yes (Other)
  Sender: FDA-Public Use
  Company Number: US-BAYER-2020-131623

PATIENT
  Age: 82 Year
  Sex: Male

DRUGS (1)
  1. CIPRO [Suspect]
     Active Substance: CIPROFLOXACIN HYDROCHLORIDE
     Indication: PROSTATE INFECTION
     Dosage: UNK
     Route: 048
     Dates: start: 1993

REACTIONS (16)
  - Tendon disorder [None]
  - Bedridden [None]
  - Arthralgia [None]
  - Pain [Recovered/Resolved]
  - Cardiac ablation [None]
  - General physical health deterioration [None]
  - Cardiac operation [None]
  - Prostate infection [None]
  - Atrial fibrillation [None]
  - Lyme disease [None]
  - Fibromyalgia [None]
  - Connective tissue disorder [None]
  - Multiple sclerosis [None]
  - Mobility decreased [Recovered/Resolved]
  - Neuropathy peripheral [None]
  - Gait disturbance [None]

NARRATIVE: CASE EVENT DATE: 2019
